FAERS Safety Report 23573033 (Version 2)
Quarter: 2024Q3

REPORT INFORMATION
  Report Type: Spontaneous
  Country: US (occurrence: US)
  Receive Date: 20240227
  Receipt Date: 20240902
  Transmission Date: 20241017
  Serious: Yes (Other)
  Sender: BRISTOL MYERS SQUIBB
  Company Number: US-BRISTOL-MYERS SQUIBB COMPANY-2024-028957

PATIENT
  Age: 78 Year
  Sex: Male

DRUGS (1)
  1. REVLIMID [Suspect]
     Active Substance: LENALIDOMIDE
     Indication: Plasma cell myeloma
     Dosage: QD FOR 14 DAYS ON, 7 OFF
     Route: 048

REACTIONS (5)
  - Atrial fibrillation [Unknown]
  - Intentional dose omission [Unknown]
  - Off label use [Unknown]
  - Hypoacusis [Unknown]
  - Rash [Unknown]
